FAERS Safety Report 7640768-4 (Version None)
Quarter: 2011Q3

REPORT INFORMATION
  Report Type: 
  Country: None (occurrence: None)
  Receive Date: 20110728
  Receipt Date: 20110720
  Transmission Date: 20111222
  Serious: Yes (Other)
  Sender: FDA-Public Use
  Company Number: IT-AMGEN-ITACT2011036813

PATIENT
  Age: 66 Year
  Sex: Female
  Weight: 44 kg

DRUGS (6)
  1. PANITUMUMAB [Suspect]
     Indication: COLORECTAL CANCER METASTATIC
     Dosage: 288 MG, UNK
  2. FLUOROURACIL [Concomitant]
     Dosage: 3240 MG, UNK
  3. OXALIPLATIN [Concomitant]
     Dosage: 122 MG, UNK
  4. FONDAPARINUX SODIUM [Concomitant]
     Indication: VENOUS THROMBOSIS
     Dosage: 5 MG, UNK
     Route: 048
     Dates: start: 20110519
  5. LEUCOVORIN CALCIUM [Concomitant]
     Dosage: 280 MG, UNK
  6. LANSOPRAZOLE [Concomitant]
     Dosage: 15 MG, UNK
     Route: 048
     Dates: start: 20110519

REACTIONS (4)
  - NEUTROPENIA [None]
  - DECREASED APPETITE [None]
  - ASTHENIA [None]
  - HYPOKALAEMIA [None]
